FAERS Safety Report 16577548 (Version 3)
Quarter: 2019Q3

REPORT INFORMATION
  Report Type: Report from Study
  Country: BE (occurrence: BE)
  Receive Date: 20190716
  Receipt Date: 20190916
  Transmission Date: 20191004
  Serious: Yes (Other)
  Sender: FDA-Public Use
  Company Number: PHHY2019BE162756

PATIENT
  Age: 78 Year
  Sex: Female

DRUGS (8)
  1. BYL719 [Suspect]
     Active Substance: ALPELISIB
     Dosage: 250 MG, UNK
     Route: 048
     Dates: start: 20190607
  2. UNI DIAMICRON [Concomitant]
     Active Substance: GLICLAZIDE
     Indication: PRODUCT USED FOR UNKNOWN INDICATION
     Dosage: 60 MG, QD
     Route: 065
     Dates: start: 20190621
  3. TOUJEO [Concomitant]
     Active Substance: INSULIN GLARGINE
     Indication: PRODUCT USED FOR UNKNOWN INDICATION
     Dosage: 24 U, UNK
     Route: 065
     Dates: start: 20190713
  4. FASLODEX [Concomitant]
     Active Substance: FULVESTRANT
     Indication: PRODUCT USED FOR UNKNOWN INDICATION
     Dosage: UNK
     Route: 065
     Dates: start: 20190510
  5. BYL719 [Suspect]
     Active Substance: ALPELISIB
     Indication: BREAST CANCER
     Dosage: 300 MG, QD
     Route: 048
     Dates: start: 20190510, end: 20190523
  6. INSULINE [Concomitant]
     Active Substance: INSULIN NOS
     Indication: PRODUCT USED FOR UNKNOWN INDICATION
     Dosage: UNK
     Route: 065
     Dates: start: 20190705
  7. NOVOMIX [Concomitant]
     Active Substance: INSULIN ASPART
     Indication: PRODUCT USED FOR UNKNOWN INDICATION
     Dosage: 10 U, QD (2 INJECTIONS DAILY, 6 UNITS IN MORNING AND 4 UNITS IN THE EVENING)
     Route: 065
     Dates: start: 20190705
  8. NOVORAPID [Concomitant]
     Active Substance: INSULIN ASPART
     Indication: PRODUCT USED FOR UNKNOWN INDICATION
     Dosage: 20 ? 26 ? 24 UNIT DOUBLE ADJUSTING SCHEME
     Route: 065
     Dates: start: 20190713

REACTIONS (9)
  - Hyperglycaemia [Recovering/Resolving]
  - Diarrhoea [Recovered/Resolved]
  - Concomitant disease aggravated [Unknown]
  - Concomitant disease aggravated [Recovered/Resolved]
  - Decreased appetite [Recovered/Resolved]
  - Polyneuropathy [Unknown]
  - Mucosal inflammation [Recovered/Resolved]
  - Neurotoxicity [Unknown]
  - Rash [Recovered/Resolved]

NARRATIVE: CASE EVENT DATE: 20190520
